FAERS Safety Report 8226990-7 (Version None)
Quarter: 2012Q1

REPORT INFORMATION
  Report Type: 
  Country: None (occurrence: None)
  Receive Date: 20120322
  Receipt Date: 20120313
  Transmission Date: 20120608
  Serious: Yes (Hospitalization)
  Sender: FDA-Public Use
  Company Number: CA-JNJFOC-20120306235

PATIENT
  Sex: Male
  Weight: 72.7 kg

DRUGS (8)
  1. CIPROFLOXACIN HYDROCHLORIDE [Concomitant]
     Route: 065
  2. REMICADE [Suspect]
     Indication: CROHN'S DISEASE
     Dosage: 5TH INFUSION
     Route: 042
     Dates: start: 20120313
  3. MULTI-VITAMINS [Concomitant]
     Route: 065
  4. VITAMIN D [Concomitant]
     Route: 065
  5. METHOTREXATE [Concomitant]
     Dosage: 6 TABLETS EVERY WEDNESDAY
     Route: 048
  6. FLAGYL [Concomitant]
     Route: 065
  7. PREDNISONE TAB [Concomitant]
     Route: 048
  8. REMICADE [Suspect]
     Route: 042
     Dates: start: 20111207

REACTIONS (1)
  - UNEVALUABLE EVENT [None]
